FAERS Safety Report 14585261 (Version 1)
Quarter: 2018Q1

REPORT INFORMATION
  Report Type: Spontaneous
  Country: CH (occurrence: CH)
  Receive Date: 20180301
  Receipt Date: 20180301
  Transmission Date: 20180509
  Serious: Yes (Hospitalization)
  Sender: FDA-Public Use
  Company Number: CH-ROCHE-2078555

PATIENT
  Age: 64 Year
  Sex: Female
  Weight: 69.2 kg

DRUGS (21)
  1. TEMESTA (SWITZERLAND) [Interacting]
     Active Substance: LORAZEPAM
     Indication: AGITATION
     Dosage: 0.5 MG IN RESERVE SINCE 29/JAN/2018 ONCE IN THE NIGHT OF 29/30/JAN/2018, 30/31/JAN/2018 AND CONTINUE
     Route: 048
     Dates: start: 20180129
  2. MOTILIUM [Concomitant]
     Active Substance: DOMPERIDONE
     Dosage: 1-1-1-0
     Route: 048
     Dates: end: 20180124
  3. ASPIRIN CARDIO [Concomitant]
     Active Substance: ASPIRIN
     Dosage: 1-0-0-0?INTERRUPTED BECAUSE OF UNCLEAR INDICATION
     Route: 048
     Dates: end: 20180125
  4. ANEXATE [Concomitant]
     Active Substance: FLUMAZENIL
  5. MADOPAR [Concomitant]
     Active Substance: BENSERAZIDE HYDROCHLORIDE\LEVODOPA
     Indication: AGITATION
     Dosage: 1-1-1-1
     Route: 048
     Dates: end: 20180124
  6. RIVOTRIL [Interacting]
     Active Substance: CLONAZEPAM
     Route: 048
     Dates: start: 20180122
  7. TEMESTA (SWITZERLAND) [Interacting]
     Active Substance: LORAZEPAM
     Indication: HALLUCINATION
  8. ESIDREX [Concomitant]
     Active Substance: HYDROCHLOROTHIAZIDE
     Dosage: 0-0-0.5-0
     Route: 048
  9. METOJECT [Concomitant]
     Active Substance: METHOTREXATE SODIUM
     Dosage: 20 MG 1X/WO
     Route: 058
     Dates: start: 2011
  10. BACTRIM [Concomitant]
     Active Substance: SULFAMETHOXAZOLE\TRIMETHOPRIM
     Indication: URINARY TRACT INFECTION
     Dosage: 1-0-1
     Route: 048
     Dates: start: 20180127, end: 20180131
  11. LEPONEX [Interacting]
     Active Substance: CLOZAPINE
     Indication: AGITATION
     Dosage: EINMALIG 1/4 TBL (=6.25 MG) AUS RESERVE
     Route: 048
     Dates: start: 20180127, end: 20180127
  12. AKINETON [Concomitant]
     Active Substance: BIPERIDEN HYDROCHLORIDE
     Dosage: 1-1-1-0
     Route: 048
     Dates: end: 20180125
  13. ACIDUM FOLICUM [Concomitant]
     Active Substance: FOLIC ACID
     Dosage: 5 MG 1X/WOCHE
     Route: 048
  14. APROVEL [Concomitant]
     Active Substance: IRBESARTAN
     Dosage: 0-0-1-0
     Route: 048
  15. RIVOTRIL [Suspect]
     Active Substance: CLONAZEPAM
     Indication: PRODUCT USED FOR UNKNOWN INDICATION
     Dosage: 0-0-0-1
     Route: 048
     Dates: start: 2017
  16. BRUFEN [Concomitant]
     Active Substance: IBUPROFEN
     Dosage: 0-0-0-1
     Route: 048
     Dates: end: 20180125
  17. CIPRALEX [Concomitant]
     Active Substance: ESCITALOPRAM OXALATE
     Dosage: 1-0-0-0
     Route: 048
  18. RIVOTRIL [Interacting]
     Active Substance: CLONAZEPAM
     Dosage: DOSAGE REDUCTION ON 30/JAN/2018 TO A TOTAL DAILY DOSAGE OF 1 MG
     Route: 048
     Dates: start: 20180130
  19. AKINETON [Concomitant]
     Active Substance: BIPERIDEN HYDROCHLORIDE
     Dosage: 1-0-0-0
     Route: 048
     Dates: start: 20180126, end: 20180129
  20. LEPONEX [Interacting]
     Active Substance: CLOZAPINE
     Indication: HALLUCINATION
     Dosage: 0-0-0-1/4 (=6.25 MG)
     Route: 048
     Dates: start: 20180123, end: 20180127
  21. QUETIAPIN [Concomitant]
     Active Substance: QUETIAPINE
     Dosage: AT A GRADUALLY INCREASING DOSAGE SINCE 28/JAN/2018 (TARGET DOSAGE 100 MG/DAY)?28 AND 29/JAN/2018: 12
     Route: 048
     Dates: start: 20180128

REACTIONS (2)
  - Apnoea [Recovered/Resolved]
  - Drug interaction [Unknown]

NARRATIVE: CASE EVENT DATE: 20180123
